FAERS Safety Report 8089032-2 (Version None)
Quarter: 2012Q1

REPORT INFORMATION
  Report Type: 
  Country: None (occurrence: None)
  Receive Date: 20120128
  Receipt Date: 20110706
  Transmission Date: 20120608
  Serious: No
  Sender: FDA-Public Use
  Company Number: US-ABBOTT-11P-163-0837381-00

PATIENT
  Sex: Female
  Weight: 124.85 kg

DRUGS (5)
  1. HUMIRA [Suspect]
     Indication: RHEUMATOID ARTHRITIS
     Dates: start: 20050101, end: 20080101
  2. BENICAR [Concomitant]
     Indication: HYPERTENSION
  3. ENBREL [Concomitant]
     Indication: RHEUMATOID ARTHRITIS
  4. FUROSEMIDE [Concomitant]
     Indication: HYPERTENSION
  5. MOTRIN [Concomitant]
     Indication: RHEUMATOID ARTHRITIS

REACTIONS (1)
  - DRUG INEFFECTIVE [None]
